FAERS Safety Report 25640980 (Version 2)
Quarter: 2025Q3

REPORT INFORMATION
  Report Type: Report from Study
  Country: CO (occurrence: CO)
  Receive Date: 20250804
  Receipt Date: 20250826
  Transmission Date: 20251021
  Serious: Yes (Hospitalization)
  Sender: JOHNSON AND JOHNSON
  Company Number: CO-JNJFOC-20250800837

PATIENT
  Age: 34 Year
  Sex: Male
  Weight: 60 kg

DRUGS (3)
  1. INVEGA SUSTENNA [Suspect]
     Active Substance: PALIPERIDONE PALMITATE
     Indication: Schizophrenia
     Dosage: LAST ADMINISTERED DATE WAS ON 30-JUL-2025
     Route: 030
     Dates: start: 20241005
  2. INVEGA SUSTENNA [Suspect]
     Active Substance: PALIPERIDONE PALMITATE
  3. INVEGA SUSTENNA [Suspect]
     Active Substance: PALIPERIDONE PALMITATE

REACTIONS (4)
  - Malaise [Unknown]
  - Abnormal behaviour [Not Recovered/Not Resolved]
  - Substance abuse [Unknown]
  - Anxiety [Unknown]

NARRATIVE: CASE EVENT DATE: 20250713
